FAERS Safety Report 14047047 (Version 4)
Quarter: 2018Q1

REPORT INFORMATION
  Report Type: Spontaneous
  Country: US (occurrence: US)
  Receive Date: 20171005
  Receipt Date: 20180103
  Transmission Date: 20180508
  Serious: Yes (Other)
  Sender: FDA-Public Use
  Company Number: US-SA-2017SA179197

PATIENT
  Age: 48 Year
  Sex: Male
  Weight: 90.7 kg

DRUGS (3)
  1. GOLD BOND ANTI ITCH [Suspect]
     Active Substance: MENTHOL\PRAMOXINE HYDROCHLORIDE
     Indication: RASH
     Route: 065
     Dates: start: 20170909, end: 20171009
  2. GOLD BOND ANTI ITCH [Suspect]
     Active Substance: MENTHOL\PRAMOXINE HYDROCHLORIDE
     Indication: PRURITUS
     Route: 065
     Dates: start: 20170909, end: 20171009
  3. GOLD BOND ANTI ITCH [Suspect]
     Active Substance: MENTHOL\PRAMOXINE HYDROCHLORIDE
     Indication: RASH
     Route: 065
     Dates: start: 20170909, end: 20171009

REACTIONS (5)
  - Wound haemorrhage [Recovered/Resolved]
  - Scar [Recovered/Resolved]
  - Third degree chemical burn of skin [Recovered/Resolved]
  - Application site vesicles [Recovered/Resolved]
  - Hyperkeratosis [Recovering/Resolving]

NARRATIVE: CASE EVENT DATE: 20170910
